FAERS Safety Report 6525060-3 (Version None)
Quarter: 2009Q4

REPORT INFORMATION
  Report Type: 
  Country: None (occurrence: None)
  Receive Date: 20091223
  Receipt Date: 20091211
  Transmission Date: 20100525
  Serious: Yes (Hospitalization)
  Sender: FDA-Public Use
  Company Number: A-NJ2009-27891

PATIENT
  Age: 66 Year
  Sex: Female
  Weight: 47.2 kg

DRUGS (11)
  1. TRACLEER [Suspect]
     Indication: PULMONARY ARTERIAL HYPERTENSION
     Dosage: 62.5 MG, BID, ORAL
     Route: 048
     Dates: start: 20090421
  2. REGLAN [Concomitant]
  3. DIVALPROEX (VALPROATE SEMISODIUM) [Concomitant]
  4. PREMARIN [Concomitant]
  5. HYDROCHLOROTHIAZIDE [Concomitant]
  6. FIORICET (PARACETAMOL,BUTALBITAL, CAFFEINE) [Concomitant]
  7. VICODIN [Concomitant]
  8. REQUIP [Concomitant]
  9. SYMBICORT [Concomitant]
  10. OXYGEN (OXYGEN) [Concomitant]
  11. XANAX [Concomitant]

REACTIONS (5)
  - DEHYDRATION [None]
  - FATIGUE [None]
  - GASTROENTERITIS [None]
  - HYPERHIDROSIS [None]
  - LIVER DISORDER [None]
